FAERS Safety Report 5029367-0 (Version None)
Quarter: 2006Q2

REPORT INFORMATION
  Report Type: 
  Country: None (occurrence: None)
  Receive Date: 20060614
  Receipt Date: 20060525
  Transmission Date: 20061013
  Serious: Yes (Hospitalization)
  Sender: FDA-Public Use
  Company Number: US200602005539

PATIENT
  Age: 80 Year
  Sex: Female
  Weight: 64.4 kg

DRUGS (12)
  1. TERIPARATIDE(TERIPARATIDE) PEN,DISPOSABLE [Suspect]
     Indication: OSTEOPOROSIS
     Dosage: 20  UG, DAILY (1/D), SUBCUTANEOUS
     Route: 058
     Dates: start: 20051217
  2. FORTEO [Concomitant]
  3. WARFARIN SODIUM [Concomitant]
  4. ATENOLOL [Concomitant]
  5. FLECAINIDE ACETATE [Concomitant]
  6. CELEXA [Concomitant]
  7. CALCIUM (CALCIUM) [Concomitant]
  8. NASONEX [Concomitant]
  9. PREVACID [Concomitant]
  10. TYLENOL W/ CODEINE NO. 3 [Concomitant]
  11. COLACE (DOCUSATE SODIUM) [Concomitant]
  12. LIPITOR [Concomitant]

REACTIONS (4)
  - ACUTE MYOCARDIAL INFARCTION [None]
  - BLOOD PRESSURE SYSTOLIC INCREASED [None]
  - PHARMACEUTICAL PRODUCT COMPLAINT [None]
  - VENTRICULAR HYPERTROPHY [None]
